FAERS Safety Report 7497128-9 (Version None)
Quarter: 2011Q2

REPORT INFORMATION
  Report Type: 
  Country: None (occurrence: None)
  Receive Date: 20110523
  Receipt Date: 20110516
  Transmission Date: 20111010
  Serious: Yes (Other)
  Sender: FDA-Public Use
  Company Number: US-SANOFI-AVENTIS-2011SA031389

PATIENT
  Age: 73 Year
  Sex: Male

DRUGS (1)
  1. PLAVIX [Suspect]
     Route: 048

REACTIONS (4)
  - CONTUSION [None]
  - HEPATIC FUNCTION ABNORMAL [None]
  - THROMBOSIS [None]
  - OFF LABEL USE [None]
